FAERS Safety Report 14613608 (Version 1)
Quarter: 2018Q1

REPORT INFORMATION
  Report Type: Spontaneous
  Country: PT (occurrence: PT)
  Receive Date: 20180308
  Receipt Date: 20180308
  Transmission Date: 20180509
  Serious: Yes (Other)
  Sender: FDA-Public Use
  Company Number: PHHY2018PT031075

PATIENT
  Age: 18 Month
  Sex: Female

DRUGS (4)
  1. ZINC OXIDE. [Concomitant]
     Active Substance: ZINC OXIDE
     Indication: RASH
     Route: 061
  2. HIDROCORTISONA [Suspect]
     Active Substance: HYDROCORTISONE
     Indication: DERMATITIS DIAPER
     Route: 061
  3. CLOTRIMAZOLE. [Concomitant]
     Active Substance: CLOTRIMAZOLE
     Indication: RASH
     Route: 061
  4. BETAMETHASONE. [Suspect]
     Active Substance: BETAMETHASONE
     Indication: DERMATITIS DIAPER
     Route: 061

REACTIONS (7)
  - Granuloma [Recovered/Resolved]
  - Skin plaque [Unknown]
  - Erythema [Unknown]
  - Therapy non-responder [Unknown]
  - Skin mass [Unknown]
  - Skin ulcer [Unknown]
  - Skin exfoliation [Unknown]
